FAERS Safety Report 4697699-1 (Version None)
Quarter: 2005Q2

REPORT INFORMATION
  Report Type: 
  Country: None (occurrence: None)
  Receive Date: 20050622
  Receipt Date: 20050613
  Transmission Date: 20051028
  Serious: Yes (Life-Threatening, Disabling, Other)
  Sender: FDA-Public Use
  Company Number: 2005021558

PATIENT
  Age: 59 Year
  Sex: Female

DRUGS (5)
  1. LIPITOR [Suspect]
     Indication: HYPERCHOLESTEROLAEMIA
     Dosage: 40 MG (40 MG, 1 IN 1 D), ORAL
     Route: 048
     Dates: start: 20030301, end: 20040406
  2. BEXTRA [Suspect]
     Indication: BACK PAIN
     Dosage: 10 MG (10 MG, 1 IN 1 D), ORAL
     Route: 048
     Dates: start: 20040315, end: 20040324
  3. AMOXICILLIN [Concomitant]
  4. PREMARIN [Concomitant]
  5. LOTREL [Concomitant]

REACTIONS (8)
  - ALOPECIA [None]
  - AMNESIA [None]
  - ARTHRALGIA [None]
  - AUTOIMMUNE HEPATITIS [None]
  - DISTURBANCE IN ATTENTION [None]
  - DRUG HYPERSENSITIVITY [None]
  - DYSPEPSIA [None]
  - HEPATITIS ACUTE [None]
